FAERS Safety Report 8230328-9 (Version None)
Quarter: 2012Q1

REPORT INFORMATION
  Report Type: 
  Country: None (occurrence: None)
  Receive Date: 20120322
  Receipt Date: 20120322
  Transmission Date: 20120608
  Serious: No
  Sender: FDA-Public Use
  Company Number: None

PATIENT
  Age: 52 Year
  Sex: Female

DRUGS (1)
  1. RECLAST [Suspect]
     Dates: start: 20100824, end: 20100824

REACTIONS (8)
  - HEPATIC FIBROSIS [None]
  - ABDOMINAL PAIN UPPER [None]
  - PYREXIA [None]
  - HEPATITIS [None]
  - FATIGUE [None]
  - LIVER INJURY [None]
  - JAUNDICE [None]
  - RASH [None]
